FAERS Safety Report 5730211-4 (Version None)
Quarter: 2008Q2

REPORT INFORMATION
  Report Type: 
  Country: None (occurrence: None)
  Receive Date: 20080505
  Receipt Date: 20080505
  Transmission Date: 20081010
  Serious: Yes (Hospitalization)
  Sender: FDA-Public Use
  Company Number: None

PATIENT
  Sex: Male
  Weight: 55.5 kg

DRUGS (1)
  1. TEMOZOLOMIDE [Suspect]
     Dosage: 4940 MG

REACTIONS (2)
  - FALL [None]
  - PNEUMONIA [None]
